FAERS Safety Report 4994810-X (Version None)
Quarter: 2006Q2

REPORT INFORMATION
  Report Type: 
  Country: None (occurrence: None)
  Receive Date: 20060503
  Receipt Date: 20060424
  Transmission Date: 20061013
  Serious: Yes (Hospitalization, Other)
  Sender: FDA-Public Use
  Company Number: 2006037356

PATIENT
  Age: 82 Year
  Sex: Male
  Weight: 89.8122 kg

DRUGS (16)
  1. LIPITOR [Suspect]
     Indication: BLOOD CHOLESTEROL INCREASED
     Dosage: 40 MG (40 MG, 1 IN 1 D)
  2. ASPIRIN [Concomitant]
  3. VICODIN ES (HYDROCODOE BITARTRATE, PARACETAMOL) [Concomitant]
  4. HUMALOG [Concomitant]
  5. HUMALOG [Concomitant]
  6. FOLTX (CYANOCOBALAMIN, FOLIC ACID, PYRIDOXINE) [Concomitant]
  7. MONOPRIL [Concomitant]
  8. HYDROCHLOROTHIAZIDE [Concomitant]
  9. ACIPHEX [Concomitant]
  10. MEGACE [Concomitant]
  11. DETROL LA [Concomitant]
  12. PLAVIX [Concomitant]
  13. NITROGLYCERIN [Concomitant]
  14. NIASPAN [Concomitant]
  15. HUMULIN 30/70 (INSULIN HUMAN INJECTION, ISOPHANE) [Concomitant]
  16. PROTONIX [Concomitant]

REACTIONS (4)
  - BLOOD CHLORIDE INCREASED [None]
  - BLOOD GLUCOSE INCREASED [None]
  - BLOOD OSMOLARITY INCREASED [None]
  - CORONARY ARTERY OCCLUSION [None]
